FAERS Safety Report 7482246-1 (Version None)
Quarter: 2011Q2

REPORT INFORMATION
  Report Type: 
  Country: None (occurrence: None)
  Receive Date: 20110516
  Receipt Date: 20110510
  Transmission Date: 20111010
  Serious: Yes (Other)
  Sender: FDA-Public Use
  Company Number: US-PFIZER INC-2011100014

PATIENT
  Age: 36 Year
  Sex: Female

DRUGS (1)
  1. DEPO-PROVERA [Suspect]

REACTIONS (6)
  - OCULAR ICTERUS [None]
  - ANXIETY [None]
  - TOOTH LOSS [None]
  - JAUNDICE [None]
  - WEIGHT INCREASED [None]
  - BONE LOSS [None]
